FAERS Safety Report 25756118 (Version 1)
Quarter: 2025Q3

REPORT INFORMATION
  Report Type: Spontaneous
  Country: US (occurrence: None)
  Receive Date: 20250902
  Receipt Date: 20250902
  Transmission Date: 20251021
  Serious: No
  Sender: FDA-CTU
  Company Number: None

PATIENT
  Age: 42 Year
  Sex: Male
  Weight: 79.2 kg

DRUGS (3)
  1. CLOMIPHENE CITRATE [Suspect]
     Active Substance: CLOMIPHENE CITRATE
     Indication: Blood testosterone decreased
     Dosage: OTHER QUANTITY : 2 CAPSULE(S);?FREQUENCY : DAILY;?
     Route: 048
     Dates: start: 20250805, end: 20250901
  2. Clomiphene Citrate (2x28mg per day) [Concomitant]
  3. Anastrazole (.5mg weekly) [Concomitant]

REACTIONS (2)
  - Visual impairment [None]
  - Visual impairment [None]

NARRATIVE: CASE EVENT DATE: 20250826
